FAERS Safety Report 5417234-X (Version None)
Quarter: 2007Q3

REPORT INFORMATION
  Report Type: 
  Country: None (occurrence: None)
  Receive Date: 20070816
  Receipt Date: 20070814
  Transmission Date: 20080115
  Serious: Yes (Death)
  Sender: FDA-Public Use
  Company Number: US-SHR-US-2007-006379

PATIENT
  Age: 77 Year
  Sex: Female
  Weight: 85.261 kg

DRUGS (5)
  1. MAGNEVIST [Suspect]
     Indication: NUCLEAR MAGNETIC RESONANCE IMAGING
     Dosage: 20 ML, 1 DOSE
     Route: 042
     Dates: start: 20010203, end: 20010203
  2. MAGNEVIST [Suspect]
     Dosage: 60 ML, 1 DOSE
     Route: 042
     Dates: start: 20021001, end: 20021001
  3. COUMADIN [Concomitant]
     Dates: start: 20021007
  4. LEVAQUIN [Concomitant]
     Indication: PNEUMONIA
  5. BETA BLOCKING AGENTS [Concomitant]

REACTIONS (1)
  - NEPHROGENIC SYSTEMIC FIBROSIS [None]
